FAERS Safety Report 13746893 (Version 1)
Quarter: 2017Q3

REPORT INFORMATION
  Report Type: Report from Study
  Country: US (occurrence: US)
  Receive Date: 20170712
  Receipt Date: 20170712
  Transmission Date: 20171127
  Serious: Yes (Hospitalization)
  Sender: FDA-Public Use
  Company Number: US-ALLERGAN-1729029US

PATIENT
  Age: 74 Year
  Sex: Male
  Weight: 85.26 kg

DRUGS (1)
  1. MEMANTINE HCL 14MG/ML;DONEPEZIL HCL 10MG (TBD) [Suspect]
     Active Substance: DONEPEZIL HYDROCHLORIDE\MEMANTINE HYDROCHLORIDE
     Indication: DEMENTIA
     Dosage: UNK UNK, QD
     Route: 065
     Dates: start: 201703, end: 20170424

REACTIONS (3)
  - Bradycardia [Recovered/Resolved]
  - Presyncope [Recovered/Resolved]
  - Dizziness [Recovered/Resolved]

NARRATIVE: CASE EVENT DATE: 201704
